FAERS Safety Report 18153099 (Version 3)
Quarter: 2020Q4

REPORT INFORMATION
  Report Type: Spontaneous
  Country: US (occurrence: US)
  Receive Date: 20200815
  Receipt Date: 20201120
  Transmission Date: 20210113
  Serious: No
  Sender: FDA-Public Use
  Company Number: US-GLAXOSMITHKLINE-US2020AMR160401

PATIENT
  Sex: Female

DRUGS (4)
  1. ZEJULA [Suspect]
     Active Substance: NIRAPARIB
     Dosage: 100 MG, QD
  2. ZEJULA [Suspect]
     Active Substance: NIRAPARIB
     Indication: OVARIAN CANCER
     Dosage: 300 MG, QD
     Dates: start: 20200730
  3. ZEJULA [Suspect]
     Active Substance: NIRAPARIB
     Dosage: 100 MG, QD (1 DF QD)
  4. ZEJULA [Suspect]
     Active Substance: NIRAPARIB
     Dosage: 2 DF, QD

REACTIONS (6)
  - Abdominal rigidity [Unknown]
  - Decreased appetite [Unknown]
  - Renal disorder [Unknown]
  - Constipation [Unknown]
  - Abdominal discomfort [Unknown]
  - Product use issue [Unknown]
